FAERS Safety Report 17326591 (Version 1)
Quarter: 2020Q1

REPORT INFORMATION
  Report Type: Spontaneous
  Country: NL (occurrence: NL)
  Receive Date: 20200127
  Receipt Date: 20200127
  Transmission Date: 20200409
  Serious: Yes (Hospitalization, Other)
  Sender: FDA-Public Use
  Company Number: NL-MYLANLABS-2020M1007974

PATIENT
  Age: 53 Year
  Sex: Male

DRUGS (5)
  1. PRASUGREL. [Suspect]
     Active Substance: PRASUGREL
     Indication: CEREBROVASCULAR ACCIDENT
  2. PRASUGREL. [Suspect]
     Active Substance: PRASUGREL
     Indication: CAROTID ARTERY OCCLUSION
  3. PRASUGREL. [Suspect]
     Active Substance: PRASUGREL
     Indication: CAROTID ARTERY STENT INSERTION
  4. PRASUGREL. [Suspect]
     Active Substance: PRASUGREL
     Indication: STENT PLACEMENT
     Dosage: 5 MG, QD
     Route: 048
  5. PRASUGREL. [Suspect]
     Active Substance: PRASUGREL
     Indication: CAROTID ARTERY DISSECTION

REACTIONS (1)
  - Device occlusion [Unknown]
